FAERS Safety Report 12433225 (Version 1)
Quarter: 2016Q2

REPORT INFORMATION
  Report Type: Spontaneous
  Country: FR (occurrence: FR)
  Receive Date: 20160603
  Receipt Date: 20160603
  Transmission Date: 20160815
  Serious: Yes (Hospitalization, Other)
  Sender: FDA-Public Use
  Company Number: FR-ELI_LILLY_AND_COMPANY-FR201605011406

PATIENT
  Age: 73 Year
  Sex: Male

DRUGS (4)
  1. CISPLATIN. [Concomitant]
     Active Substance: CISPLATIN
     Indication: SQUAMOUS CELL CARCINOMA OF THE ORAL CAVITY
     Dosage: UNK UNK, UNKNOWN
     Route: 065
     Dates: start: 201512
  2. CARBOPLATIN HOSPIRA [Suspect]
     Active Substance: CARBOPLATIN
     Indication: SQUAMOUS CELL CARCINOMA OF THE ORAL CAVITY
     Dosage: 580 MG, UNKNOWN
     Route: 042
     Dates: start: 20160104, end: 20160202
  3. FLUOROURACILE [Suspect]
     Active Substance: FLUOROURACIL
     Indication: SQUAMOUS CELL CARCINOMA OF THE ORAL CAVITY
     Dosage: UNK UNK, UNKNOWN
     Route: 042
     Dates: start: 20151215, end: 20160202
  4. ERBITUX [Suspect]
     Active Substance: CETUXIMAB
     Indication: SQUAMOUS CELL CARCINOMA OF THE ORAL CAVITY
     Dosage: 460 MG, UNKNOWN
     Route: 042
     Dates: start: 20151215

REACTIONS (6)
  - Congestive cardiomyopathy [Unknown]
  - Renal impairment [Unknown]
  - Left ventricular dysfunction [Recovering/Resolving]
  - Platelet count decreased [Unknown]
  - Atrial flutter [Recovered/Resolved]
  - Cardiotoxicity [Unknown]

NARRATIVE: CASE EVENT DATE: 201602
